FAERS Safety Report 17765088 (Version 1)
Quarter: 2020Q2

REPORT INFORMATION
  Report Type: Spontaneous
  Country: FR (occurrence: FR)
  Receive Date: 20200511
  Receipt Date: 20200511
  Transmission Date: 20200714
  Serious: Yes (Hospitalization)
  Sender: FDA-Public Use
  Company Number: FR-ACCORD-181382

PATIENT
  Age: 77 Year
  Sex: Male
  Weight: 98 kg

DRUGS (7)
  1. PACLITAXEL ACCORD [Suspect]
     Active Substance: PACLITAXEL
     Indication: BRONCHIAL CARCINOMA
     Route: 042
     Dates: start: 20191002, end: 20191106
  2. PERINDOPRIL [Concomitant]
     Active Substance: PERINDOPRIL
  3. XARELTO [Concomitant]
     Active Substance: RIVAROXABAN
  4. DIFFU K [Concomitant]
     Active Substance: POTASSIUM CHLORIDE
  5. CARBOPLATINE ACCORD [Suspect]
     Active Substance: CARBOPLATIN
     Indication: BRONCHIAL CARCINOMA
     Dosage: DOSE: 1
     Route: 042
     Dates: start: 20191002, end: 20191106
  6. FUROSEMIDE. [Concomitant]
     Active Substance: FUROSEMIDE
  7. BISOPROLOL [Concomitant]
     Active Substance: BISOPROLOL

REACTIONS (1)
  - Pancytopenia [Not Recovered/Not Resolved]

NARRATIVE: CASE EVENT DATE: 20191113
